FAERS Safety Report 7107268-1 (Version None)
Quarter: 2010Q4

REPORT INFORMATION
  Report Type: 
  Country: None (occurrence: None)
  Receive Date: 20101116
  Receipt Date: 20100923
  Transmission Date: 20110411
  Serious: No
  Sender: FDA-Public Use
  Company Number: US-ABBOTT-10P-163-0672807-00

PATIENT
  Sex: Male
  Weight: 126.21 kg

DRUGS (3)
  1. SIMCOR [Suspect]
     Indication: HIGH DENSITY LIPOPROTEIN DECREASED
     Dosage: 1000/40 MG DAILY AT HOUR OF SLEEP
     Dates: start: 20100901
  2. SIMCOR [Suspect]
     Indication: LOW DENSITY LIPOPROTEIN INCREASED
  3. ASPIRIN [Concomitant]
     Indication: FLUSHING
     Dosage: 2 AT HOUR OF SLEEP

REACTIONS (2)
  - ABNORMAL DREAMS [None]
  - FLUSHING [None]
